FAERS Safety Report 11068284 (Version 1)
Quarter: 2015Q2

REPORT INFORMATION
  Report Type: Spontaneous
  Country: US (occurrence: US)
  Receive Date: 20150427
  Receipt Date: 20150427
  Transmission Date: 20150821
  Serious: No
  Sender: FDA-Public Use
  Company Number: US-ASTRAZENECA-2014SE31134

PATIENT
  Age: 81 Year
  Sex: Female
  Weight: 72.6 kg

DRUGS (3)
  1. PULMICORT RESPULES [Suspect]
     Active Substance: BUDESONIDE
     Indication: HYPERSENSITIVITY
     Dosage: UNKNOWN
     Route: 055
     Dates: start: 20140501, end: 20140501
  2. ACIPHEX [Concomitant]
     Active Substance: RABEPRAZOLE SODIUM
     Indication: DYSPEPSIA
     Dosage: 20MG
  3. PULMICORT RESPULES [Suspect]
     Active Substance: BUDESONIDE
     Indication: SINUSITIS
     Dosage: UNKNOWN
     Route: 055
     Dates: start: 20140501, end: 20140501

REACTIONS (4)
  - Intentional product misuse [Unknown]
  - Product use issue [Unknown]
  - Nasal discomfort [Unknown]
  - Product use issue [Unknown]

NARRATIVE: CASE EVENT DATE: 20140501
